FAERS Safety Report 16763650 (Version 1)
Quarter: 2019Q3

REPORT INFORMATION
  Report Type: Spontaneous
  Country: PL (occurrence: PL)
  Receive Date: 20190902
  Receipt Date: 20190902
  Transmission Date: 20191005
  Serious: Yes (Other)
  Sender: FDA-Public Use
  Company Number: PL-BRISTOL-MYERS SQUIBB COMPANY-BMS-2019-083155

PATIENT
  Sex: Male

DRUGS (1)
  1. OPDIVO [Suspect]
     Active Substance: NIVOLUMAB
     Indication: SQUAMOUS CELL CARCINOMA OF LUNG
     Dosage: 240 MILLIGRAM, Q2WK
     Route: 065

REACTIONS (1)
  - Neutropenia [Unknown]
